FAERS Safety Report 6431680-7 (Version None)
Quarter: 2009Q4

REPORT INFORMATION
  Report Type: 
  Country: None (occurrence: None)
  Receive Date: 20091103
  Receipt Date: 20090824
  Transmission Date: 20100525
  Serious: No
  Sender: FDA-Public Use
  Company Number: 001637

PATIENT
  Sex: Male

DRUGS (2)
  1. VIMPAT [Suspect]
     Dosage: (50 MG BID, HALF A 100MG TABLET VIMPAT; ORAL)
     Route: 048
  2. LEVETIRACETAM [Concomitant]

REACTIONS (5)
  - BALANCE DISORDER [None]
  - DISTURBANCE IN ATTENTION [None]
  - FATIGUE [None]
  - MENTAL DISORDER [None]
  - TABLET ISSUE [None]
